FAERS Safety Report 4494394-9 (Version None)
Quarter: 2004Q4

REPORT INFORMATION
  Report Type: 
  Country: None (occurrence: None)
  Receive Date: 20041102
  Receipt Date: 20041015
  Transmission Date: 20050328
  Serious: Yes (Hospitalization)
  Sender: FDA-Public Use
  Company Number: US_0410106887

PATIENT
  Age: 55 Year
  Sex: Male

DRUGS (1)
  1. VANCOMYCIN HCL [Suspect]
     Indication: MENINGITIS STAPHYLOCOCCAL
     Dosage: 10 MG/1 DAY

REACTIONS (6)
  - DRUG HYPERSENSITIVITY [None]
  - EXANTHEM [None]
  - GENERAL PHYSICAL HEALTH DETERIORATION [None]
  - MENINGITIS STAPHYLOCOCCAL [None]
  - MULTIPLE-DRUG RESISTANCE [None]
  - RESPIRATORY DISORDER [None]
